FAERS Safety Report 8275873-5 (Version None)
Quarter: 2012Q2

REPORT INFORMATION
  Report Type: 
  Country: None (occurrence: None)
  Receive Date: 20120412
  Receipt Date: 20120328
  Transmission Date: 20120825
  Serious: Yes (Hospitalization, Other)
  Sender: FDA-Public Use
  Company Number: US-BAYER-201031290NA

PATIENT
  Age: 17 Year
  Sex: Female
  Weight: 70.748 kg

DRUGS (15)
  1. IBUPROFEN [Concomitant]
     Dosage: UNK UNK, PRN
     Route: 048
  2. CYCLOBENAZPRINE [Concomitant]
     Dosage: 10 MG, TID
  3. XOPENEX [Concomitant]
     Dosage: 1.25 MG, BID
     Route: 055
  4. ZITHROMAX [Concomitant]
     Dosage: UNK
     Route: 048
     Dates: start: 20081101
  5. HEPARIN [Concomitant]
     Indication: PULMONARY EMBOLISM
  6. ORAL CONTRACEPTIVE NOS [Concomitant]
  7. PULMICORT [Concomitant]
     Dosage: 0.5 MG, QD
     Route: 055
  8. YAZ [Suspect]
     Indication: POLYCYSTIC OVARIES
     Dosage: UNK UNK, QD
     Route: 048
     Dates: start: 20060101, end: 20090101
  9. YASMIN [Suspect]
     Dosage: UNK UNK, QD
     Route: 048
     Dates: start: 20060101, end: 20090101
  10. ALBUTEROL [Concomitant]
     Dosage: UNK UNK, PRN
     Route: 055
  11. BACTRIM [Concomitant]
     Indication: URINARY TRACT INFECTION
     Dosage: UNK
     Dates: start: 20080101
  12. COUMADIN [Concomitant]
     Indication: PULMONARY EMBOLISM
     Dosage: UNK
     Dates: start: 20080101
  13. HYDROCODONE [Concomitant]
     Dosage: UNK UNK, PRN
     Route: 048
     Dates: start: 20080801
  14. PHENERGAN SYRUP W/CODEINE [Concomitant]
     Dosage: UNK
     Route: 048
     Dates: start: 20081101
  15. CLARITIN [Concomitant]

REACTIONS (3)
  - PULMONARY EMBOLISM [None]
  - PULMONARY INFARCTION [None]
  - DEEP VEIN THROMBOSIS [None]
